FAERS Safety Report 5446123-X (Version None)
Quarter: 2007Q3

REPORT INFORMATION
  Report Type: 
  Country: None (occurrence: None)
  Receive Date: 20070904
  Receipt Date: 20070621
  Transmission Date: 20080115
  Serious: Yes (Hospitalization)
  Sender: FDA-Public Use
  Company Number: E2B_00010764

PATIENT
  Age: 84 Year
  Sex: Female

DRUGS (10)
  1. SOTALOL HYDROCHLORIDE [Suspect]
     Indication: ATRIAL FIBRILLATION
     Dosage: 160 MG, 2 IN 1 D;
     Dates: start: 20070501, end: 20070603
  2. COZAAR (LOSARTON POTASSIUM) [Concomitant]
  3. ZINACEF [Concomitant]
  4. WARFARIN SODIUM [Concomitant]
  5. ALLOPURINOL [Concomitant]
  6. POTASSIUM CHLORIDE [Concomitant]
  7. ALBYL-E (ACETYLSALICYLIC ACID, MAGNESIUM OXIDE) [Concomitant]
  8. DURAL [Concomitant]
  9. FLAGYL [Concomitant]
  10. LIPITOR [Concomitant]

REACTIONS (2)
  - CONVULSION [None]
  - VENTRICULAR TACHYCARDIA [None]
